FAERS Safety Report 20176295 (Version 1)
Quarter: 2021Q4

REPORT INFORMATION
  Report Type: Spontaneous
  Country: CN (occurrence: CN)
  Receive Date: 20211213
  Receipt Date: 20211213
  Transmission Date: 20220303
  Serious: Yes (Other)
  Sender: FDA-Public Use
  Company Number: CN-PFIZER INC-202101723323

PATIENT
  Age: 6 Year
  Sex: Male

DRUGS (6)
  1. METHOTREXATE [Suspect]
     Active Substance: METHOTREXATE
     Indication: Burkitt^s lymphoma
     Dosage: 2.200 G, 1X/DAY
     Route: 041
     Dates: start: 20211110, end: 20211110
  2. METHOTREXATE [Suspect]
     Active Substance: METHOTREXATE
     Dosage: 12.500 MG
     Route: 037
     Dates: start: 20211110, end: 20211110
  3. VINCRISTINE SULFATE [Suspect]
     Active Substance: VINCRISTINE SULFATE
     Indication: Burkitt^s lymphoma
     Dosage: D1
     Dates: start: 20211110
  4. PREDNISOLONE [Suspect]
     Active Substance: PREDNISOLONE
     Indication: Burkitt^s lymphoma
     Dosage: D1-D6
     Dates: start: 20211110
  5. CYCLOPHOSPHAMIDE [Suspect]
     Active Substance: CYCLOPHOSPHAMIDE
     Indication: Burkitt^s lymphoma
     Dosage: D2-4
     Dates: start: 20211110
  6. DAUNORUBICIN [Suspect]
     Active Substance: DAUNORUBICIN
     Indication: Burkitt^s lymphoma
     Dosage: D2-D3
     Dates: start: 20211110

REACTIONS (7)
  - Encephalopathy [Recovering/Resolving]
  - Papilloedema [Unknown]
  - Brain oedema [Unknown]
  - Headache [Recovered/Resolved]
  - Abdominal pain [Recovered/Resolved]
  - Vision blurred [Recovered/Resolved]
  - Crying [Unknown]

NARRATIVE: CASE EVENT DATE: 20211111
